FAERS Safety Report 7653806-X (Version None)
Quarter: 2011Q3

REPORT INFORMATION
  Report Type: 
  Country: None (occurrence: None)
  Receive Date: 20110803
  Receipt Date: 20110721
  Transmission Date: 20111222
  Serious: Yes (Hospitalization)
  Sender: FDA-Public Use
  Company Number: JP-ALLERGAN-1105330US

PATIENT
  Age: 73 Year
  Sex: Female

DRUGS (6)
  1. BETAMETHASONE VALERATE [Suspect]
     Indication: RASH
     Route: 061
  2. ERLOTINIB HYDROCHLORIDE [Suspect]
     Indication: NEOPLASM MALIGNANT
     Dosage: 150 MG, QD
     Route: 048
  3. ISOSORBIDE DINITRATE [Suspect]
     Dosage: UNK
  4. MINOCYCLINE HCL [Suspect]
     Dosage: 50 MG, TID
     Route: 048
  5. EPINASTINE HYDROCHLORIDE [Suspect]
     Indication: PRODUCT USED FOR UNKNOWN INDICATION
     Dosage: 60 MG, BID
     Route: 048
  6. GENTAMICIN SULFATE [Suspect]
     Route: 061

REACTIONS (1)
  - DIZZINESS [None]
